FAERS Safety Report 7320556-9 (Version None)
Quarter: 2011Q1

REPORT INFORMATION
  Report Type: 
  Country: None (occurrence: None)
  Receive Date: 20110228
  Receipt Date: 20110221
  Transmission Date: 20110831
  Serious: Yes (Hospitalization)
  Sender: FDA-Public Use
  Company Number: IE-US-EMD SERONO, INC.-220002K09IRL

PATIENT
  Sex: Female
  Weight: 15 kg

DRUGS (4)
  1. TRIMETHOPRIM [Concomitant]
     Route: 048
  2. MELATONIN [Concomitant]
     Route: 048
  3. SAIZEN [Suspect]
     Route: 058
     Dates: start: 20090101
  4. SAIZEN [Suspect]
     Indication: TURNER'S SYNDROME
     Route: 058
     Dates: start: 20081024, end: 20090501

REACTIONS (2)
  - SINUS TACHYCARDIA [None]
  - HYPERTENSION [None]
